FAERS Safety Report 9011441 (Version 1)
Quarter: 2013Q1

REPORT INFORMATION
  Report Type: Spontaneous
  Country: BR (occurrence: BR)
  Receive Date: 20130108
  Receipt Date: 20130108
  Transmission Date: 20140127
  Serious: Yes (Death)
  Sender: FDA-Public Use
  Company Number: PHHY2013BR001542

PATIENT
  Age: 72 Year
  Sex: Male

DRUGS (1)
  1. DIOVAN [Suspect]
     Indication: CARDIOVASCULAR DISORDER
     Dosage: 1 DF, DAILY
     Route: 048

REACTIONS (2)
  - Pulmonary embolism [Fatal]
  - Cardiac disorder [Fatal]
